FAERS Safety Report 14009601 (Version 2)
Quarter: 2017Q3

REPORT INFORMATION
  Report Type: Not Available
  Country: None (occurrence: US)
  Receive Date: 20170925
  Receipt Date: 20170925
  Transmission Date: 20171128
  Serious: No
  Sender: FDA-Public Use
  Company Number: US-AKORN-59187

PATIENT
  Sex: Female

DRUGS (1)
  1. CICLOPIROX TOPICAL SOLUTION, 8% (NAIL LACQUER) [Suspect]
     Active Substance: CICLOPIROX

REACTIONS (1)
  - Nail disorder [Unknown]
